FAERS Safety Report 5552369-2 (Version None)
Quarter: 2007Q4

REPORT INFORMATION
  Report Type: 
  Country: None (occurrence: None)
  Receive Date: 20071212
  Receipt Date: 20071210
  Transmission Date: 20080405
  Serious: Yes (Hospitalization)
  Sender: FDA-Public Use
  Company Number: GB-MERCK-0712GBR00038

PATIENT
  Sex: Male

DRUGS (4)
  1. CANCIDAS [Suspect]
     Indication: FUNGAL INFECTION
     Route: 051
     Dates: start: 20071208, end: 20071208
  2. CANCIDAS [Suspect]
     Route: 051
     Dates: start: 20071209, end: 20071209
  3. ANTINEOPLASTIC (UNSPECIFIED) [Concomitant]
     Route: 065
  4. [THERAPY UNSPECIFIED] [Concomitant]
     Indication: FUNGAL INFECTION
     Route: 065

REACTIONS (1)
  - GENERALISED ERYTHEMA [None]
